FAERS Safety Report 5214740-8 (Version None)
Quarter: 2006Q4

REPORT INFORMATION
  Report Type: 
  Country: None (occurrence: None)
  Receive Date: 20061113
  Receipt Date: 20060612
  Transmission Date: 20070319
  Serious: Yes (Other)
  Sender: FDA-Public Use
  Company Number: US-JNJFOC-20060505121

PATIENT
  Age: 70 Year
  Sex: Male
  Weight: 79 kg

DRUGS (10)
  1. LEVAQUIN [Suspect]
     Indication: SEPSIS
     Dosage: 500 MG, 1 IN 1 DAY, INTRAVENOUS
     Route: 042
     Dates: start: 20060506, end: 20060516
  2. LEVAQUIN [Suspect]
     Indication: URINARY TRACT INFECTION
     Dosage: 500 MG, 1 IN 1 DAY, INTRAVENOUS
     Route: 042
     Dates: start: 20060506, end: 20060516
  3. LEVAQUIN [Suspect]
  4. TPN (TPN) [Concomitant]
  5. CAPTOPRIL [Concomitant]
  6. CA SUPPLEMENT (CALCIUM) [Concomitant]
  7. DILTIAZEM [Concomitant]
  8. WARFARIN SODIUM [Concomitant]
  9. FE SUPPLEMENT (IRON) [Concomitant]
  10. . [Concomitant]

REACTIONS (1)
  - TENDON RUPTURE [None]
